FAERS Safety Report 10261729 (Version 1)
Quarter: 2014Q2

REPORT INFORMATION
  Report Type: Spontaneous
  Country: US (occurrence: None)
  Receive Date: 20140624
  Receipt Date: 20140624
  Transmission Date: 20141212
  Serious: No
  Sender: FDA-Public Use
  Company Number: None

PATIENT
  Age: 28 Year
  Sex: Male
  Weight: 73.48 kg

DRUGS (10)
  1. CYCLOBENZAPRINE 10MG CAMBER [Suspect]
     Indication: HYPOTONIA
     Dosage: 5 MG PO 7 D
     Route: 048
     Dates: start: 20140506, end: 20140606
  2. BENTROPINE MESYLATE (BENZATROPINE MESILATE) [Concomitant]
  3. STRATTERA [Concomitant]
  4. MIRTAZADINE [Concomitant]
  5. METOPIZONE [Concomitant]
  6. HALDOL [Concomitant]
  7. ABILIFY [Concomitant]
  8. LITHIUM [Concomitant]
  9. KLONOPIN [Concomitant]
  10. OMEPRAZOLE [Concomitant]

REACTIONS (1)
  - Urinary retention [None]
